FAERS Safety Report 5812742-1 (Version None)
Quarter: 2008Q3

REPORT INFORMATION
  Report Type: 
  Country: None (occurrence: None)
  Receive Date: 20080717
  Receipt Date: 20080709
  Transmission Date: 20090109
  Serious: Yes (Death, Disabling, Other)
  Sender: FDA-Public Use
  Company Number: US-ALLERGAN-0808407US

PATIENT
  Sex: Female

DRUGS (5)
  1. BOTOX [Suspect]
     Indication: TREMOR
     Dosage: 300 MG, SINGLE
     Route: 030
     Dates: start: 20050501, end: 20050501
  2. BOTOX [Interacting]
     Dosage: 300 MG, SINGLE
     Route: 030
  3. BOTOX [Interacting]
     Dosage: 300 MG, SINGLE
     Route: 030
  4. BOTOX [Interacting]
     Dosage: 300 MG, SINGLE
     Route: 030
     Dates: start: 20040101, end: 20040101
  5. UNKNOWN (^COCKTAIL OF DRUGS^) [Interacting]
     Indication: DRUG USE FOR UNKNOWN INDICATION

REACTIONS (5)
  - CARDIAC ARREST [None]
  - CHOKING [None]
  - DRUG INTERACTION [None]
  - DYSPNOEA [None]
  - SEVERE MENTAL RETARDATION [None]
